FAERS Safety Report 4388447-3 (Version None)
Quarter: 2004Q3

REPORT INFORMATION
  Report Type: 
  Country: None (occurrence: None)
  Receive Date: 20040701
  Receipt Date: 20030110
  Transmission Date: 20050211
  Serious: Yes (Hospitalization)
  Sender: FDA-Public Use
  Company Number: US-BRISTOL-MYERS SQUIBB COMPANY-12155479

PATIENT
  Age: 41 Year
  Sex: Male

DRUGS (8)
  1. BLEOMYCIN [Suspect]
     Indication: GERM CELL CANCER
     Dosage: INITIAL DOSE ON 14-DEC-2002
     Route: 042
     Dates: start: 20021221, end: 20021221
  2. ETOPOSIDE [Suspect]
     Indication: GERM CELL CANCER
     Dates: start: 20021214, end: 20021218
  3. CISPLATIN [Suspect]
     Indication: GERM CELL CANCER
     Dates: start: 20021214, end: 20021218
  4. ALLOPURINOL [Concomitant]
     Indication: PREMEDICATION
     Dates: start: 20021218
  5. MOXIFLOXACIN HCL [Concomitant]
     Indication: PREMEDICATION
     Dates: start: 20021213, end: 20021227
  6. RANITIDINE [Concomitant]
     Indication: PREMEDICATION
     Dates: start: 20021214, end: 20021218
  7. ZOFRAN [Concomitant]
     Indication: PREMEDICATION
     Dates: start: 20021214, end: 20021218
  8. DEXAMETHASONE TAB [Concomitant]
     Indication: PREMEDICATION
     Dates: start: 20021214, end: 20021218

REACTIONS (1)
  - DEEP VEIN THROMBOSIS [None]
